FAERS Safety Report 4364485-1 (Version None)
Quarter: 2004Q2

REPORT INFORMATION
  Report Type: 
  Country: None (occurrence: None)
  Receive Date: 20040519
  Receipt Date: 20040510
  Transmission Date: 20050107
  Serious: Yes (Disabling)
  Sender: FDA-Public Use
  Company Number: TAP2004Q00564

PATIENT
  Age: 17 Year
  Sex: Female
  Weight: 54.4316 kg

DRUGS (6)
  1. LUPRON DEPOT-3 [Suspect]
     Indication: ENDOMETRIOSIS
     Dosage: 3.75 MG, ONCE, INTRAMUSCULAR
     Route: 030
     Dates: start: 20040505, end: 20040505
  2. ASACOL [Concomitant]
  3. IRON [Concomitant]
  4. MELATONIN [Concomitant]
  5. PHENERGAN [Concomitant]
  6. PENTASA [Concomitant]

REACTIONS (14)
  - BACK PAIN [None]
  - BONE PAIN [None]
  - CIRCULATORY COLLAPSE [None]
  - DIFFICULTY IN WALKING [None]
  - DISEASE PROGRESSION [None]
  - DYSURIA [None]
  - FATIGUE [None]
  - HEADACHE [None]
  - JOINT SWELLING [None]
  - MENTAL DISORDER [None]
  - MUSCULAR WEAKNESS [None]
  - NAUSEA [None]
  - OEDEMA PERIPHERAL [None]
  - TUNNEL VISION [None]
